FAERS Safety Report 7928297-1 (Version None)
Quarter: 2011Q4

REPORT INFORMATION
  Report Type: 
  Country: None (occurrence: None)
  Receive Date: 20111118
  Receipt Date: 20111118
  Transmission Date: 20120403
  Serious: Yes (Life-Threatening, Hospitalization)
  Sender: FDA-Public Use
  Company Number: JP-B.I. PHARMACEUTICALS,INC./RIDGEFIELD-2011-BP-26460NB

PATIENT
  Sex: Male
  Weight: 60.5 kg

DRUGS (7)
  1. NORVASC [Concomitant]
     Indication: HYPERTENSION
     Dosage: 5 MG
     Route: 048
     Dates: end: 20110126
  2. MIGLITOL [Concomitant]
     Dosage: 150 MG
     Route: 048
     Dates: end: 20110126
  3. BUFFERIN [Concomitant]
     Dosage: 81 MG
     Route: 048
     Dates: end: 20110126
  4. SAWACHION [Concomitant]
     Dosage: 15 MG
     Route: 048
     Dates: end: 20110126
  5. TELMISARTAN AND HYDROCHLOROTHIAZIDE [Suspect]
     Indication: HYPERTENSION
     Dosage: 1DF, TELMISARTAN40MG+HYDROCHLOROTHIAZIDE12.5MG
     Route: 048
     Dates: start: 20100705, end: 20110126
  6. ACTOS [Concomitant]
     Dosage: 30 MG
     Route: 048
     Dates: end: 20110126
  7. NOVOLIN R [Concomitant]
     Dosage: 30 U
     Route: 058
     Dates: end: 20110126

REACTIONS (1)
  - HEPATIC NEOPLASM MALIGNANT [None]
